FAERS Safety Report 4848293-0 (Version None)
Quarter: 2005Q4

REPORT INFORMATION
  Report Type: 
  Country: None (occurrence: None)
  Receive Date: 20051206
  Receipt Date: 20051201
  Transmission Date: 20060501
  Serious: Yes (Death, Life-Threatening, Hospitalization)
  Sender: FDA-Public Use
  Company Number: OXYA20050008

PATIENT
  Age: 43 Year
  Sex: Female

DRUGS (2)
  1. OXYCODONE/APAP [Suspect]
     Dosage: 30 TABS ONCE, PO
     Route: 048
     Dates: start: 20040101, end: 20040101
  2. BUTALBITAL ACETAMINOPHEN AND CAFFEINE [Suspect]
     Dosage: 30 TABS ONCE PO
     Route: 048
     Dates: start: 20040101, end: 20040101

REACTIONS (15)
  - ALANINE AMINOTRANSFERASE INCREASED [None]
  - ASPARTATE AMINOTRANSFERASE INCREASED [None]
  - BLOOD BICARBONATE DECREASED [None]
  - BLOOD CREATINE PHOSPHOKINASE INCREASED [None]
  - BLOOD GLUCOSE DECREASED [None]
  - BLOOD PH DECREASED [None]
  - COMPLETED SUICIDE [None]
  - DISSEMINATED INTRAVASCULAR COAGULATION [None]
  - HEART RATE INCREASED [None]
  - LOSS OF CONSCIOUSNESS [None]
  - MULTI-ORGAN FAILURE [None]
  - MULTIPLE DRUG OVERDOSE INTENTIONAL [None]
  - PCO2 DECREASED [None]
  - SINUS TACHYCARDIA [None]
  - TACHYPNOEA [None]
